FAERS Safety Report 19665917 (Version 1)
Quarter: 2021Q3

REPORT INFORMATION
  Report Type: Spontaneous
  Country: US (occurrence: US)
  Receive Date: 20210806
  Receipt Date: 20210806
  Transmission Date: 20211014
  Serious: Yes (Other)
  Sender: FDA-Public Use
  Company Number: None

PATIENT
  Sex: Female
  Weight: 77.4 kg

DRUGS (4)
  1. GLIMEPIRIDE. [Concomitant]
     Active Substance: GLIMEPIRIDE
  2. LANTUS [Concomitant]
     Active Substance: INSULIN GLARGINE
  3. METFORMIN EXTENDED RELEASE [Suspect]
     Active Substance: METFORMIN HYDROCHLORIDE
  4. ATENOLOL. [Concomitant]
     Active Substance: ATENOLOL

REACTIONS (4)
  - Abdominal pain upper [None]
  - Nausea [None]
  - Chills [None]
  - Diarrhoea [None]
